FAERS Safety Report 4916648-1 (Version None)
Quarter: 2006Q1

REPORT INFORMATION
  Report Type: 
  Country: None (occurrence: None)
  Receive Date: 20060220
  Receipt Date: 20060209
  Transmission Date: 20060701
  Serious: Yes (Other)
  Sender: FDA-Public Use
  Company Number: 2006SE00905

PATIENT
  Age: 19 Year
  Sex: Male

DRUGS (6)
  1. SEROQUEL [Suspect]
     Indication: BIPOLAR I DISORDER
     Route: 048
     Dates: start: 20060101, end: 20060101
  2. SEROQUEL [Suspect]
     Route: 048
     Dates: start: 20060101, end: 20060101
  3. CIPRALEX [Concomitant]
     Indication: BIPOLAR I DISORDER
     Route: 048
     Dates: start: 20050101
  4. CIPRALEX [Concomitant]
     Route: 048
  5. CIPRALEX [Concomitant]
     Route: 048
  6. CIPRALEX [Concomitant]
     Route: 048
     Dates: start: 20060101

REACTIONS (4)
  - AGGRESSION [None]
  - IMPULSIVE BEHAVIOUR [None]
  - PSYCHOMOTOR HYPERACTIVITY [None]
  - SUICIDAL IDEATION [None]
